FAERS Safety Report 9663893 (Version 2)
Quarter: 2013Q4

REPORT INFORMATION
  Report Type: Report from Study
  Country: FR (occurrence: FR)
  Receive Date: 20131101
  Receipt Date: 20131204
  Transmission Date: 20140711
  Serious: Yes (Hospitalization, Other)
  Sender: FDA-Public Use
  Company Number: FR-ASTELLAS-2013EU009345

PATIENT
  Age: 77 Year
  Sex: Male
  Weight: 95 kg

DRUGS (8)
  1. ENZALUTAMIDE [Suspect]
     Indication: PROSTATE CANCER
     Dosage: 160 MG, UID/QD
     Route: 048
     Dates: start: 20130502, end: 20130712
  2. ENZALUTAMIDE [Suspect]
     Dosage: 120 MG, UID/QD
     Route: 048
     Dates: start: 20130713, end: 20130725
  3. ENZALUTAMIDE [Suspect]
     Dosage: 160 MG, UID/QD
     Route: 048
     Dates: start: 20130726, end: 20130813
  4. PARIET [Concomitant]
     Indication: PROPHYLAXIS
     Dosage: 20 MG, UID/QD
     Route: 048
     Dates: start: 201308
  5. KARDEGIC [Concomitant]
     Indication: ANTIPLATELET THERAPY
     Dosage: 75 MG, UID/QD
     Route: 048
  6. EFFEXOR [Concomitant]
     Indication: DEPRESSION
     Dosage: 75 MG, UID/QD
     Route: 048
     Dates: start: 20130703
  7. NEURONTIN [Concomitant]
     Indication: PAIN
     Dosage: 200 MG, BID
     Route: 065
     Dates: start: 20130805
  8. AMLOR [Concomitant]
     Indication: HYPERTENSION
     Dosage: 5 MG, UID/QD
     Route: 065
     Dates: start: 201308

REACTIONS (4)
  - Subdural haematoma [Unknown]
  - Diplopia [Recovering/Resolving]
  - Headache [Recovering/Resolving]
  - Insomnia [Recovering/Resolving]
